FAERS Safety Report 8071579-6 (Version None)
Quarter: 2012Q1

REPORT INFORMATION
  Report Type: 
  Country: None (occurrence: None)
  Receive Date: 20120125
  Receipt Date: 20120111
  Transmission Date: 20120608
  Serious: Yes (Other)
  Sender: FDA-Public Use
  Company Number: CA-JNJFOC-20120110500

PATIENT
  Sex: Female

DRUGS (10)
  1. REMICADE [Suspect]
     Indication: CROHN'S DISEASE
     Dates: start: 20080721
  2. ELAVIL [Concomitant]
  3. IMURAN [Concomitant]
  4. MORPHINE [Concomitant]
  5. ALTACE [Concomitant]
  6. ESCITALOPRAM [Concomitant]
  7. NEXIUM [Concomitant]
  8. GABAPENTIN [Concomitant]
  9. GRAVOL TAB [Concomitant]
  10. LYRICA [Concomitant]

REACTIONS (1)
  - MIGRAINE [None]
